FAERS Safety Report 7685130-3 (Version None)
Quarter: 2011Q3

REPORT INFORMATION
  Report Type: 
  Country: None (occurrence: None)
  Receive Date: 20110816
  Receipt Date: 20110808
  Transmission Date: 20111222
  Serious: Yes (Hospitalization)
  Sender: FDA-Public Use
  Company Number: US-ASTELLAS-2011US004819

PATIENT
  Sex: Female
  Weight: 113 kg

DRUGS (1)
  1. VIBATIV [Suspect]
     Indication: CELLULITIS
     Dosage: 250 MG, UID/QD
     Route: 042
     Dates: start: 20110802, end: 20110804

REACTIONS (1)
  - BLOOD GLUCOSE INCREASED [None]
